FAERS Safety Report 7080920-2 (Version None)
Quarter: 2010Q4

REPORT INFORMATION
  Report Type: 
  Country: None (occurrence: None)
  Receive Date: 20101102
  Receipt Date: 20101102
  Transmission Date: 20110411
  Serious: Yes (Other)
  Sender: FDA-Public Use
  Company Number: None

PATIENT
  Age: 43 Year
  Sex: Female

DRUGS (6)
  1. MULTIHANCE [Suspect]
     Indication: NUCLEAR MAGNETIC RESONANCE IMAGING
     Dosage: 11 ML X 1 DOSE IV 1509-1511
     Route: 042
     Dates: start: 20100825
  2. MS CONTIN [Concomitant]
  3. VITAMINS AND IRON [Concomitant]
  4. PHENERGAN [Concomitant]
  5. LAMACTIL [Concomitant]
  6. LAXATIVES [Concomitant]

REACTIONS (2)
  - DIZZINESS [None]
  - NAUSEA [None]
